FAERS Safety Report 4355997-5 (Version None)
Quarter: 2004Q2

REPORT INFORMATION
  Report Type: 
  Country: None (occurrence: None)
  Receive Date: 20040511
  Receipt Date: 20020618
  Transmission Date: 20050107
  Serious: Yes (Hospitalization, Other)
  Sender: FDA-Public Use
  Company Number: US-AMGEN-US013902

PATIENT
  Sex: Male
  Weight: 81.7 kg

DRUGS (9)
  1. ARANESP [Suspect]
     Indication: RENAL FAILURE CHRONIC
     Route: 058
     Dates: start: 20020510
  2. CELLCEPT [Suspect]
     Dates: start: 20020401, end: 20020510
  3. EPOGEN [Suspect]
     Indication: RENAL FAILURE CHRONIC
     Route: 058
     Dates: start: 20020412, end: 20020510
  4. RAPAMUNE [Concomitant]
     Dates: start: 20020510, end: 20020531
  5. CYCLOSPORINE [Concomitant]
     Dates: start: 20020331
  6. PREDNISONE [Concomitant]
     Dates: start: 20020330
  7. NORVASC [Concomitant]
     Dates: start: 20010101, end: 20020531
  8. CYTOVENE [Concomitant]
     Dates: start: 20020331
  9. BACTRIM [Concomitant]
     Dates: start: 20020331

REACTIONS (6)
  - ANAEMIA [None]
  - BONE MARROW DEPRESSION [None]
  - PARVOVIRUS INFECTION [None]
  - SERUM FERRITIN INCREASED [None]
  - THERAPEUTIC RESPONSE DECREASED [None]
  - WHITE BLOOD CELL COUNT DECREASED [None]
